FAERS Safety Report 9803633 (Version 2)
Quarter: 2014Q1

REPORT INFORMATION
  Report Type: Spontaneous
  Country: US (occurrence: None)
  Receive Date: 20140103
  Receipt Date: 20140122
  Transmission Date: 20141002
  Serious: Yes (Other)
  Sender: FDA-Public Use
  Company Number: 2013P1022271

PATIENT
  Sex: Female

DRUGS (2)
  1. PHENOBARBITAL [Suspect]
     Dosage: ;QD ;
  2. DILANTIN [Suspect]

REACTIONS (3)
  - Convulsion [None]
  - Product substitution issue [None]
  - Product quality issue [None]
